FAERS Safety Report 25831677 (Version 4)
Quarter: 2025Q4

REPORT INFORMATION
  Report Type: Spontaneous
  Country: US (occurrence: US)
  Receive Date: 20250922
  Receipt Date: 20251201
  Transmission Date: 20260118
  Serious: No
  Sender: PFIZER
  Company Number: US-PFIZER INC-202500185088

PATIENT
  Age: 86 Year
  Sex: Male

DRUGS (3)
  1. XALKORI [Suspect]
     Active Substance: CRIZOTINIB
     Indication: Lung neoplasm malignant
     Dosage: 250 MG
  2. XALKORI [Suspect]
     Active Substance: CRIZOTINIB
     Dosage: 250 MG, 2X/DAY
     Route: 048
  3. CARVEDILOL [Concomitant]
     Active Substance: CARVEDILOL
     Dosage: UNK

REACTIONS (1)
  - Diarrhoea [Unknown]
